FAERS Safety Report 9553802 (Version 1)
Quarter: 2013Q3

REPORT INFORMATION
  Report Type: Spontaneous
  Country: US (occurrence: None)
  Receive Date: 20130912
  Receipt Date: 20130912
  Transmission Date: 20140515
  Serious: Yes (Hospitalization)
  Sender: FDA-Public Use
  Company Number: 2011AP001811

PATIENT
  Age: 68 Year
  Sex: Male

DRUGS (13)
  1. CARBIDOPA AND LEVODOPA TABLETS USP [Suspect]
     Indication: PARKINSON^S DISEASE
     Dosage: ;5XD;
  2. CARBIDOPA AND LEVODOPA [Suspect]
     Indication: PARKINSON^S DISEASE
     Dosage: ;TID;
  3. ENTACAPONE [Suspect]
     Indication: PARKINSON^S DISEASE
  4. AMLODIPINE [Concomitant]
  5. NADOLOL [Concomitant]
  6. ACETYLSALICYLIC ACID [Concomitant]
  7. ATORVASTATIN [Concomitant]
  8. FINASTERIDE [Concomitant]
  9. PRAZOSIN [Concomitant]
  10. MIDAZOLAM [Concomitant]
  11. FENTANYL [Concomitant]
  12. AMPICILLIN [Concomitant]
  13. GENTAMICIN [Concomitant]

REACTIONS (2)
  - Drug withdrawal syndrome [None]
  - Neuroleptic malignant syndrome [None]
